FAERS Safety Report 24275436 (Version 2)
Quarter: 2024Q4

REPORT INFORMATION
  Report Type: Spontaneous
  Country: US (occurrence: US)
  Receive Date: 20240903
  Receipt Date: 20241105
  Transmission Date: 20250115
  Serious: Yes (Hospitalization, Other)
  Sender: AUROBINDO
  Company Number: US-AUROBINDO-AUR-APL-2024-043856

PATIENT
  Age: 51 Year
  Sex: Female

DRUGS (3)
  1. AMANTADINE [Suspect]
     Active Substance: AMANTADINE
     Indication: Malignant catatonia
     Dosage: 100 MILLIGRAM, ONCE A DAY
     Route: 065
  2. AMANTADINE [Suspect]
     Active Substance: AMANTADINE
     Dosage: 100 MILLIGRAM, 3 TIMES A DAY
     Route: 065
  3. QUETIAPINE [Suspect]
     Active Substance: QUETIAPINE
     Indication: Schizophrenia
     Dosage: 50 MILLIGRAM, TWO TIMES A DAY
     Route: 048

REACTIONS (4)
  - Catatonia [Recovered/Resolved]
  - Electrocardiogram QT prolonged [Unknown]
  - Decreased appetite [Recovered/Resolved]
  - Apathy [Recovered/Resolved]
